FAERS Safety Report 24416117 (Version 1)
Quarter: 2024Q4

REPORT INFORMATION
  Report Type: Spontaneous
  Country: US (occurrence: US)
  Receive Date: 20241009
  Receipt Date: 20241009
  Transmission Date: 20250114
  Serious: Yes (Hospitalization)
  Sender: NOVARTIS
  Company Number: US-PFIZER INC-202400264801

PATIENT
  Sex: Female
  Weight: 58.51 kg

DRUGS (4)
  1. EVEROLIMUS [Suspect]
     Active Substance: EVEROLIMUS
     Indication: Product used for unknown indication
     Dosage: UNK
     Route: 065
  2. LASIX [Concomitant]
     Active Substance: FUROSEMIDE
     Indication: Product used for unknown indication
     Route: 041
  3. FLOMAX [Concomitant]
     Active Substance: TAMSULOSIN HYDROCHLORIDE
     Indication: Product used for unknown indication
     Dosage: 0.4 MG, BID
     Route: 065
  4. FLOMAX [Concomitant]
     Active Substance: TAMSULOSIN HYDROCHLORIDE
     Dosage: 0.8 MG
     Route: 065

REACTIONS (8)
  - Protein urine [Unknown]
  - Haemoglobin decreased [Unknown]
  - Hypertensive crisis [Unknown]
  - Chest pain [Unknown]
  - Pulmonary oedema [Unknown]
  - Peripheral swelling [Unknown]
  - Hypotension [Unknown]
  - Dehydration [Unknown]
